FAERS Safety Report 5732030-1 (Version None)
Quarter: 2008Q2

REPORT INFORMATION
  Report Type: 
  Country: None (occurrence: None)
  Receive Date: 20080508
  Receipt Date: 20080502
  Transmission Date: 20081010
  Serious: Yes (Other)
  Sender: FDA-Public Use
  Company Number: AU-PURDUE-USA_2008_0032734

PATIENT
  Age: 41 Year
  Sex: Male

DRUGS (8)
  1. OXYCODONE HCL [Suspect]
     Indication: DRUG USE FOR UNKNOWN INDICATION
  2. ALPRAZOLAM [Concomitant]
  3. DI-GESIC [Concomitant]
  4. LEXAPRO [Concomitant]
  5. STILNOX [Concomitant]
  6. TEMAZEPAM [Concomitant]
  7. NOTEN [Concomitant]
  8. ZANIDIP [Concomitant]

REACTIONS (3)
  - AMNESIA [None]
  - DELIRIUM [None]
  - DRUG INTERACTION [None]
